FAERS Safety Report 5507668-7 (Version None)
Quarter: 2007Q4

REPORT INFORMATION
  Report Type: 
  Country: None (occurrence: None)
  Receive Date: 20071106
  Receipt Date: 20071030
  Transmission Date: 20080405
  Serious: Yes (Life-Threatening)
  Sender: FDA-Public Use
  Company Number: A0664046C

PATIENT
  Age: 56 Year
  Sex: Female
  Weight: 84 kg

DRUGS (2)
  1. LAPATINIB [Suspect]
     Dosage: 1500MG PER DAY
     Route: 048
     Dates: start: 20070622
  2. ACETYLSALICYL ACID [Concomitant]
     Dosage: 100MG PER DAY
     Route: 048
     Dates: start: 20070816

REACTIONS (1)
  - PULMONARY EMBOLISM [None]
